FAERS Safety Report 19222159 (Version 1)
Quarter: 2021Q2

REPORT INFORMATION
  Report Type: Spontaneous
  Country: KR (occurrence: KR)
  Receive Date: 20210506
  Receipt Date: 20210506
  Transmission Date: 20210717
  Serious: Yes (Hospitalization, Other)
  Sender: FDA-Public Use
  Company Number: KR-LUPIN PHARMACEUTICALS INC.-2021-06169

PATIENT
  Age: 58 Year
  Sex: Female

DRUGS (1)
  1. MORPHINE [Suspect]
     Active Substance: MORPHINE
     Indication: BACK PAIN
     Dosage: 3.785 MILLIGRAM, QD
     Route: 037

REACTIONS (8)
  - Irritability [Recovered/Resolved]
  - Stupor [Recovered/Resolved]
  - Respiratory rate decreased [Recovered/Resolved]
  - Pupillary reflex impaired [Recovered/Resolved]
  - Accidental overdose [Recovered/Resolved]
  - Anxiety [Recovered/Resolved]
  - Respiratory acidosis [Recovered/Resolved]
  - Hypoxia [Recovered/Resolved]
